FAERS Safety Report 11124394 (Version 3)
Quarter: 2015Q2

REPORT INFORMATION
  Report Type: Report from Study
  Country: CA (occurrence: CA)
  Receive Date: 20150520
  Receipt Date: 20150616
  Transmission Date: 20150821
  Serious: Yes (Hospitalization)
  Sender: FDA-Public Use
  Company Number: CA-BIOGENIDEC-2015BI065922

PATIENT
  Age: 47 Year
  Sex: Male

DRUGS (1)
  1. TYSABRI [Suspect]
     Active Substance: NATALIZUMAB
     Indication: RELAPSING-REMITTING MULTIPLE SCLEROSIS
     Route: 042
     Dates: start: 20150123

REACTIONS (4)
  - Ear discomfort [Unknown]
  - Headache [Unknown]
  - Psychotic disorder [Not Recovered/Not Resolved]
  - Deafness [Unknown]

NARRATIVE: CASE EVENT DATE: 20150511
